FAERS Safety Report 10168164 (Version 1)
Quarter: 2014Q2

REPORT INFORMATION
  Report Type: Report from Study
  Country: US (occurrence: US)
  Receive Date: 20140512
  Receipt Date: 20140512
  Transmission Date: 20141212
  Serious: Yes (Other)
  Sender: FDA-Public Use
  Company Number: US-ROCHE-1397575

PATIENT
  Sex: Male
  Weight: 21.1 kg

DRUGS (1)
  1. NUTROPIN AQ [Suspect]
     Indication: BODY HEIGHT BELOW NORMAL
     Route: 058

REACTIONS (4)
  - Ankle fracture [Recovered/Resolved]
  - Croup infectious [Unknown]
  - Injection site discomfort [Unknown]
  - Pain in extremity [Recovered/Resolved]
